FAERS Safety Report 4421557-0 (Version None)
Quarter: 2004Q3

REPORT INFORMATION
  Report Type: 
  Country: None (occurrence: None)
  Receive Date: 20040804
  Receipt Date: 20040721
  Transmission Date: 20050211
  Serious: Yes (Disabling, Other)
  Sender: FDA-Public Use
  Company Number: WAES 0406USA00958

PATIENT
  Age: 81 Year
  Sex: Female

DRUGS (5)
  1. FOSAMAX [Suspect]
     Indication: OSTEOPOROSIS
     Dosage: 5 MG/DAILY PO
     Route: 048
     Dates: start: 20030905
  2. BREDININ [Concomitant]
  3. LOXONIN [Concomitant]
  4. MELEX [Concomitant]
  5. ZANTAC [Concomitant]

REACTIONS (2)
  - ANAEMIA [None]
  - REFLUX OESOPHAGITIS [None]
